FAERS Safety Report 11304263 (Version 1)
Quarter: 2015Q3

REPORT INFORMATION
  Report Type: Spontaneous
  Country: US (occurrence: US)
  Receive Date: 20150723
  Receipt Date: 20150723
  Transmission Date: 20151125
  Serious: No
  Sender: FDA-Public Use
  Company Number: US-JNJFOC-20150413634

PATIENT
  Age: 66 Year
  Sex: Male

DRUGS (3)
  1. FAMOTIDINE. [Suspect]
     Active Substance: FAMOTIDINE
     Indication: PREMEDICATION
     Route: 065
  2. FAMOTIDINE. [Suspect]
     Active Substance: FAMOTIDINE
     Route: 065
  3. METHYLPREDNISOLONE. [Suspect]
     Active Substance: METHYLPREDNISOLONE
     Indication: PREMEDICATION
     Route: 065

REACTIONS (1)
  - Product used for unknown indication [Unknown]
